FAERS Safety Report 15584759 (Version 2)
Quarter: 2018Q4

REPORT INFORMATION
  Report Type: Report from Study
  Country: CN (occurrence: CN)
  Receive Date: 20181105
  Receipt Date: 20181108
  Transmission Date: 20190205
  Serious: Yes (Death, Other)
  Sender: FDA-Public Use
  Company Number: CN-ROCHE-2209420

PATIENT
  Age: 80 Year

DRUGS (2)
  1. SODIUM CHLORIDE. [Concomitant]
     Active Substance: SODIUM CHLORIDE
     Indication: CEREBRAL INFARCTION
     Route: 065
  2. ALTEPLASE. [Suspect]
     Active Substance: ALTEPLASE
     Indication: CEREBRAL INFARCTION
     Dosage: THE MAXIMUM DOSE IS 90 MG
     Route: 042

REACTIONS (6)
  - Atrial fibrillation [Fatal]
  - Cerebral infarction [Fatal]
  - Cerebral haematoma [Fatal]
  - Product use issue [Fatal]
  - Off label use [Fatal]
  - Cardiac failure [Fatal]
